FAERS Safety Report 8077494-6 (Version None)
Quarter: 2012Q1

REPORT INFORMATION
  Report Type: 
  Country: None (occurrence: None)
  Receive Date: 20120127
  Receipt Date: 20120119
  Transmission Date: 20120608
  Serious: Yes (Hospitalization)
  Sender: FDA-Public Use
  Company Number: FR-B.I. PHARMACEUTICALS,INC./RIDGEFIELD-2012-FF-00026FF

PATIENT
  Sex: Male
  Weight: 74 kg

DRUGS (5)
  1. PRADAXA [Suspect]
     Indication: HIP ARTHROPLASTY
     Dosage: 220 MG
     Route: 048
     Dates: end: 20111101
  2. NEXIUM [Concomitant]
     Dosage: 40 MG
     Route: 048
  3. ASPIRIN [Concomitant]
     Dosage: 75 MG
     Route: 048
  4. ACETAMINOPHEN AND TRAMADOL HCL [Concomitant]
     Dosage: PRN
     Route: 048
  5. ZOLPIDEM [Concomitant]
     Dosage: PRN
     Route: 048

REACTIONS (1)
  - DEVICE DISLOCATION [None]
